FAERS Safety Report 7673033-X (Version None)
Quarter: 2011Q3

REPORT INFORMATION
  Report Type: 
  Country: None (occurrence: None)
  Receive Date: 20110809
  Receipt Date: 20110803
  Transmission Date: 20111222
  Serious: Yes (Hospitalization)
  Sender: FDA-Public Use
  Company Number: AU-B.I. PHARMACEUTICALS,INC./RIDGEFIELD-2011-AU-00580AU

PATIENT
  Sex: Female
  Weight: 60 kg

DRUGS (9)
  1. PRADAXA [Suspect]
     Indication: ATRIAL FIBRILLATION
     Dosage: 110 MG
     Dates: start: 20110630, end: 20110701
  2. NOTEN [Concomitant]
     Dosage: 50 MG
  3. WARFARIN [Suspect]
  4. SLOW-K [Concomitant]
  5. CITALOPRAM HYDROBROMIDE [Concomitant]
     Dosage: 20 MG
  6. ZANTAC [Concomitant]
     Dosage: 300 MG
  7. CAPOTEN [Concomitant]
     Dosage: 150 MG
  8. LASIX [Concomitant]
     Dosage: 80 MG
  9. WARFARIN [Suspect]

REACTIONS (2)
  - INTERNATIONAL NORMALISED RATIO INCREASED [None]
  - GASTRITIS [None]
